FAERS Safety Report 7315562-4 (Version None)
Quarter: 2011Q1

REPORT INFORMATION
  Report Type: 
  Country: None (occurrence: None)
  Receive Date: 20110215
  Receipt Date: 20110131
  Transmission Date: 20110831
  Serious: Yes (Hospitalization)
  Sender: FDA-Public Use
  Company Number: IDA-00497

PATIENT
  Age: 73 Year
  Sex: Male

DRUGS (3)
  1. LASIX [Concomitant]
  2. VASERETIC (ENALAPRIL HYDROCHLOROTHIAZIDE) [Concomitant]
  3. INDERAL [Suspect]
     Dosage: 80 MG DAILY
     Dates: start: 20091230, end: 20101229

REACTIONS (1)
  - BRADYCARDIA [None]
